FAERS Safety Report 7564105-9 (Version None)
Quarter: 2011Q2

REPORT INFORMATION
  Report Type: 
  Country: None (occurrence: None)
  Receive Date: 20110622
  Receipt Date: 20110615
  Transmission Date: 20111010
  Serious: Yes (Hospitalization)
  Sender: FDA-Public Use
  Company Number: TW-PFIZER INC-2011109821

PATIENT
  Age: 46 Year
  Sex: Male

DRUGS (4)
  1. NORVASC [Concomitant]
  2. SUNITINIB MALATE [Suspect]
     Dosage: 37.5 MG, PER DAY
     Route: 048
     Dates: start: 20110216, end: 20110426
  3. SUNITINIB MALATE [Suspect]
     Indication: RENAL CELL CARCINOMA
     Dosage: 50 MG, PER DAY
     Route: 048
     Dates: start: 20090709, end: 20110216
  4. SYNTHROID [Concomitant]
     Dosage: UNK
     Dates: start: 20100201

REACTIONS (2)
  - CHOLELITHIASIS [None]
  - CHOLECYSTITIS ACUTE [None]
